FAERS Safety Report 5442021-6 (Version None)
Quarter: 2007Q3

REPORT INFORMATION
  Report Type: 
  Country: None (occurrence: None)
  Receive Date: 20070904
  Receipt Date: 20070824
  Transmission Date: 20080115
  Serious: Yes (Death, Life-Threatening)
  Sender: FDA-Public Use
  Company Number: JP-BRISTOL-MYERS SQUIBB COMPANY-13864715

PATIENT
  Age: 47 Year
  Sex: Female

DRUGS (9)
  1. ARIPIPRAZOLE [Suspect]
     Indication: SCHIZOPHRENIA
     Route: 048
     Dates: start: 20060912, end: 20070723
  2. CHLORPROMAZINE HIBENZATE [Suspect]
     Indication: SCHIZOPHRENIA
     Route: 048
     Dates: start: 20020520, end: 20070723
  3. VALPROATE SODIUM [Suspect]
     Indication: AFFECT LABILITY
     Route: 048
     Dates: start: 20050729, end: 20070723
  4. BIPERIDEN HYDROCHLORIDE TAB [Suspect]
     Indication: EXTRAPYRAMIDAL DISORDER
     Route: 048
     Dates: start: 20020513, end: 20070723
  5. LEVOMEPROMAZINE MALEATE [Suspect]
     Indication: SCHIZOPHRENIA
     Route: 048
     Dates: start: 20020520, end: 20070723
  6. FLUNITRAZEPAM [Suspect]
     Indication: SCHIZOPHRENIA
     Route: 048
     Dates: start: 20060507, end: 20070723
  7. EPINASTINE HCL [Concomitant]
     Indication: RHINITIS ALLERGIC
     Route: 048
     Dates: start: 20060216, end: 20070408
  8. SENNOSIDE [Concomitant]
     Indication: CONSTIPATION
     Route: 048
     Dates: start: 20060507, end: 20070723
  9. SODIUM PICOSULFATE [Concomitant]
     Indication: CONSTIPATION
     Route: 048
     Dates: start: 20060507, end: 20070723

REACTIONS (1)
  - CARDIO-RESPIRATORY ARREST [None]
